FAERS Safety Report 7230340-2 (Version None)
Quarter: 2011Q1

REPORT INFORMATION
  Report Type: 
  Country: None (occurrence: None)
  Receive Date: 20110118
  Receipt Date: 20110112
  Transmission Date: 20110831
  Serious: Yes (Other)
  Sender: FDA-Public Use
  Company Number: US-JNJFOC-20110103806

PATIENT
  Sex: Female
  Weight: 50.8 kg

DRUGS (3)
  1. FENTANYL-100 [Suspect]
     Indication: OVARIAN CANCER
     Route: 062
  2. CHEMOTHERAPY [Suspect]
     Indication: OVARIAN CANCER
     Route: 065
  3. FENTANYL-100 [Suspect]
     Dosage: NDC 0781-7244-55
     Route: 062

REACTIONS (4)
  - WRONG TECHNIQUE IN DRUG USAGE PROCESS [None]
  - CARDIAC DISORDER [None]
  - OVARIAN CANCER [None]
  - PRODUCT ADHESION ISSUE [None]
